FAERS Safety Report 7780213-1 (Version None)
Quarter: 2011Q3

REPORT INFORMATION
  Report Type: 
  Country: None (occurrence: None)
  Receive Date: 20110927
  Receipt Date: 20110927
  Transmission Date: 20111222
  Serious: Yes (Other)
  Sender: FDA-Public Use
  Company Number: None

PATIENT
  Sex: Male
  Weight: 108.86 kg

DRUGS (1)
  1. SOLARAZE [Suspect]
     Indication: ACTINIC KERATOSIS
     Dosage: SIZE OF A PEA
     Route: 061
     Dates: start: 20110905, end: 20110908

REACTIONS (7)
  - ABDOMINAL PAIN LOWER [None]
  - GASTRIC DILATATION [None]
  - DIARRHOEA [None]
  - DISORIENTATION [None]
  - NAUSEA [None]
  - CONFUSIONAL STATE [None]
  - DECREASED APPETITE [None]
